FAERS Safety Report 5012279-6 (Version None)
Quarter: 2006Q2

REPORT INFORMATION
  Report Type: 
  Country: None (occurrence: None)
  Receive Date: 20060524
  Receipt Date: 20060509
  Transmission Date: 20061013
  Serious: Yes (Other)
  Sender: FDA-Public Use
  Company Number: DEU-2006-0002189

PATIENT
  Age: 80 Year
  Sex: Female

DRUGS (2)
  1. OXYGESIC [Suspect]
     Dosage: ORAL
     Route: 048
     Dates: start: 20060504
  2. IBUPROFEN [Concomitant]

REACTIONS (4)
  - HYPOKALAEMIA [None]
  - POSTOPERATIVE ILEUS [None]
  - TACHYARRHYTHMIA [None]
  - VOMITING [None]
